FAERS Safety Report 8361491-7 (Version None)
Quarter: 2012Q2

REPORT INFORMATION
  Report Type: 
  Country: None (occurrence: None)
  Receive Date: 20120514
  Receipt Date: 20120504
  Transmission Date: 20120825
  Serious: No
  Sender: FDA-Public Use
  Company Number: A0977030A

PATIENT
  Age: 52 Year
  Sex: Female

DRUGS (11)
  1. PAROXETINE HYDROCHLORIDE [Suspect]
     Indication: EMOTIONAL DISTRESS
     Dosage: 60 MG/DAY
  2. FLUOXETINE [Suspect]
     Indication: EMOTIONAL DISTRESS
  3. PRAVASTATIN [Suspect]
     Indication: PRODUCT USED FOR UNKNOWN INDICATION
     Dosage: 40 MG
  4. VENLAFAXINE HYDROCHLORIDE [Suspect]
     Indication: EMOTIONAL DISTRESS
     Dosage: 300 MG/DAY
  5. DIAZEPAM [Suspect]
     Indication: EMOTIONAL DISTRESS
  6. ATORVASTATIN CALCIUM [Suspect]
     Indication: PRODUCT USED FOR UNKNOWN INDICATION
  7. TRAMADOL HYDROCHLORIDE [Suspect]
     Indication: PRODUCT USED FOR UNKNOWN INDICATION
  8. CONJUGATED ESTROGENS [Suspect]
     Indication: PRODUCT USED FOR UNKNOWN INDICATION
     Dosage: .625 MG
  9. IRBESARTAN [Suspect]
     Indication: PRODUCT USED FOR UNKNOWN INDICATION
     Dosage: 300 MG/DAY
  10. CITALOPRAM HYDROBROMIDE [Suspect]
     Indication: PRODUCT USED FOR UNKNOWN INDICATION
  11. METOCLOPRAMIDE [Suspect]
     Indication: PRODUCT USED FOR UNKNOWN INDICATION

REACTIONS (3)
  - PHYSICAL ASSAULT [None]
  - AKATHISIA [None]
  - DRUG INTERACTION [None]
